FAERS Safety Report 16931480 (Version 1)
Quarter: 2019Q4

REPORT INFORMATION
  Report Type: Spontaneous
  Country: US (occurrence: US)
  Receive Date: 20191017
  Receipt Date: 20191017
  Transmission Date: 20200122
  Serious: Yes (Congenital Anomaly)
  Sender: FDA-Public Use
  Company Number: None

PATIENT
  Age: 26 Year
  Sex: Female
  Weight: 57.15 kg

DRUGS (2)
  1. FOLATE [Concomitant]
     Active Substance: FOLATE SODIUM
  2. RHOGAM [Suspect]
     Active Substance: HUMAN RHO(D) IMMUNE GLOBULIN
     Indication: RHEUMATOID FACTOR
     Dosage: ?          OTHER FREQUENCY:PREGNANCY;?
     Route: 058
     Dates: start: 20191008, end: 20191008

REACTIONS (3)
  - Foetal death [None]
  - Maternal drugs affecting foetus [None]
  - Maternal exposure during pregnancy [None]

NARRATIVE: CASE EVENT DATE: 20191008
